FAERS Safety Report 6696415-1 (Version None)
Quarter: 2010Q2

REPORT INFORMATION
  Report Type: 
  Country: None (occurrence: None)
  Receive Date: 20100426
  Receipt Date: 20100413
  Transmission Date: 20101027
  Serious: Yes (Death, Other)
  Sender: FDA-Public Use
  Company Number: NL-ROCHE-693251

PATIENT
  Sex: Male

DRUGS (2)
  1. XELODA [Suspect]
     Dosage: DOSE FORM AND ROUTE NOT PROVIDED.
     Route: 065
  2. OXALIPLATIN [Suspect]
     Indication: DRUG USE FOR UNKNOWN INDICATION
     Route: 065

REACTIONS (2)
  - DIARRHOEA [None]
  - PNEUMONIA ASPIRATION [None]
